FAERS Safety Report 15456877 (Version 2)
Quarter: 2018Q4

REPORT INFORMATION
  Report Type: Spontaneous
  Country: JP (occurrence: JP)
  Receive Date: 20181002
  Receipt Date: 20181024
  Transmission Date: 20190204
  Serious: Yes (Death, Hospitalization, Other)
  Sender: FDA-Public Use
  Company Number: JP-JNJFOC-20181000755

PATIENT
  Age: 88 Year
  Sex: Female
  Weight: 41 kg

DRUGS (7)
  1. ALDACTONE A [Suspect]
     Active Substance: SPIRONOLACTONE
     Indication: PRODUCT USED FOR UNKNOWN INDICATION
     Route: 065
     Dates: end: 20180925
  2. XARELTO [Suspect]
     Active Substance: RIVAROXABAN
     Indication: COMA
     Route: 048
     Dates: start: 20170714, end: 20180925
  3. LASIX [Suspect]
     Active Substance: FUROSEMIDE
     Indication: PRODUCT USED FOR UNKNOWN INDICATION
     Route: 065
     Dates: end: 20180925
  4. XARELTO [Suspect]
     Active Substance: RIVAROXABAN
     Indication: ATRIAL FIBRILLATION
     Route: 048
     Dates: start: 20170714, end: 20180925
  5. NORVASC [Suspect]
     Active Substance: AMLODIPINE BESYLATE
     Indication: PRODUCT USED FOR UNKNOWN INDICATION
     Route: 065
     Dates: end: 20180925
  6. LANIRAPID [Suspect]
     Active Substance: METILDIGOXIN
     Indication: PRODUCT USED FOR UNKNOWN INDICATION
     Route: 065
     Dates: end: 20180925
  7. DEPAS [Suspect]
     Active Substance: ETIZOLAM
     Indication: PRODUCT USED FOR UNKNOWN INDICATION
     Route: 065
     Dates: end: 20180925

REACTIONS (7)
  - Carotid arterial embolus [Fatal]
  - Hypercoagulation [Unknown]
  - Subarachnoid haemorrhage [Recovering/Resolving]
  - Cardiac failure [Unknown]
  - Oedema peripheral [Unknown]
  - Brain herniation [Fatal]
  - Cerebral artery embolism [Fatal]

NARRATIVE: CASE EVENT DATE: 201809
